FAERS Safety Report 15384563 (Version 1)
Quarter: 2018Q3

REPORT INFORMATION
  Report Type: Report from Study
  Country: US (occurrence: US)
  Receive Date: 20180914
  Receipt Date: 20180914
  Transmission Date: 20181010
  Serious: Yes (Other)
  Sender: FDA-Public Use
  Company Number: US-ASTRAZENECA-2016SE39950

PATIENT
  Age: 51 Year
  Sex: Female
  Weight: 62.5 kg

DRUGS (17)
  1. LYNPARZA [Suspect]
     Active Substance: OLAPARIB
     Indication: OVARIAN CANCER
     Route: 048
     Dates: start: 20160407
  2. LYNPARZA [Suspect]
     Active Substance: OLAPARIB
     Indication: METASTASES TO LIVER
     Route: 048
     Dates: start: 20160407
  3. LYNPARZA [Suspect]
     Active Substance: OLAPARIB
     Indication: OVARIAN CANCER
     Route: 048
     Dates: start: 20180721
  4. LISINOPRIL. [Suspect]
     Active Substance: LISINOPRIL
     Route: 048
  5. MIRALEX [Concomitant]
  6. VITAMIN B6 [Concomitant]
     Active Substance: PYRIDOXINE HYDROCHLORIDE
  7. AMBIEN [Concomitant]
     Active Substance: ZOLPIDEM TARTRATE
  8. HYDROCODONE?ACETAMINOPHEN [Concomitant]
     Active Substance: ACETAMINOPHEN\HYDROCODONE
  9. NEURONTIN [Concomitant]
     Active Substance: GABAPENTIN
  10. ACYCLOVIR. [Concomitant]
     Active Substance: ACYCLOVIR
  11. GABAPENTIN. [Concomitant]
     Active Substance: GABAPENTIN
     Dosage: 4 MG, 4 TIMES DAILY.
  12. COMPAZINE [Concomitant]
     Active Substance: PROCHLORPERAZINE MALEATE
     Dosage: 10.0MG UNKNOWN
     Route: 048
  13. COLACE [Concomitant]
     Active Substance: DOCUSATE SODIUM
  14. ATIVAN [Concomitant]
     Active Substance: LORAZEPAM
  15. LYNPARZA [Suspect]
     Active Substance: OLAPARIB
     Indication: CHOLANGIOCARCINOMA
     Route: 048
     Dates: start: 20160407
  16. LYNPARZA [Suspect]
     Active Substance: OLAPARIB
     Indication: METASTASES TO LIVER
     Route: 048
     Dates: start: 20180721
  17. LYNPARZA [Suspect]
     Active Substance: OLAPARIB
     Indication: CHOLANGIOCARCINOMA
     Route: 048
     Dates: start: 20180721

REACTIONS (35)
  - Arthralgia [Not Recovered/Not Resolved]
  - Gastrooesophageal reflux disease [Unknown]
  - Onychalgia [Not Recovered/Not Resolved]
  - Vaginal ulceration [Not Recovered/Not Resolved]
  - Panic attack [Unknown]
  - Stomatitis [Not Recovered/Not Resolved]
  - Pollakiuria [Unknown]
  - Balance disorder [Unknown]
  - Vomiting [Not Recovered/Not Resolved]
  - Nail discolouration [Not Recovered/Not Resolved]
  - Insomnia [Unknown]
  - Oropharyngeal pain [Unknown]
  - Mucosal infection [Unknown]
  - Rash [Recovering/Resolving]
  - Off label use [Unknown]
  - Dysgeusia [Not Recovered/Not Resolved]
  - Hot flush [Not Recovered/Not Resolved]
  - Diarrhoea [Unknown]
  - Hepatic cyst [Unknown]
  - Product use in unapproved indication [Unknown]
  - Ovarian cancer metastatic [Not Recovered/Not Resolved]
  - Fatigue [Recovering/Resolving]
  - Constipation [Not Recovered/Not Resolved]
  - Neuropathy peripheral [Unknown]
  - Muscle spasms [Unknown]
  - Seizure [Unknown]
  - Nausea [Not Recovered/Not Resolved]
  - Asthenia [Recovering/Resolving]
  - Memory impairment [Unknown]
  - Multiple sclerosis [Unknown]
  - Alopecia [Not Recovered/Not Resolved]
  - Weight decreased [Not Recovered/Not Resolved]
  - Paraesthesia [Not Recovered/Not Resolved]
  - Pain [Unknown]
  - Muscle disorder [Unknown]

NARRATIVE: CASE EVENT DATE: 20140314
